FAERS Safety Report 11527909 (Version 1)
Quarter: 2015Q3

REPORT INFORMATION
  Report Type: Spontaneous
  Country: FI (occurrence: FI)
  Receive Date: 20150920
  Receipt Date: 20150920
  Transmission Date: 20151125
  Serious: Yes (Death, Hospitalization, Other)
  Sender: FDA-Public Use
  Company Number: FI-AMGEN-FINSP2015084476

PATIENT
  Age: 7 Decade
  Sex: Male

DRUGS (2)
  1. ENBREL [Suspect]
     Active Substance: ETANERCEPT
     Dosage: UNK
     Route: 065
  2. ENBREL [Suspect]
     Active Substance: ETANERCEPT
     Indication: PSORIATIC ARTHROPATHY
     Dosage: 50 MG, WEEKLY
     Route: 065

REACTIONS (4)
  - Pneumonia [Fatal]
  - Pneumonia bacterial [Fatal]
  - Respiratory failure [Fatal]
  - Legionella infection [Fatal]
